FAERS Safety Report 11336848 (Version 1)
Quarter: 2015Q3

REPORT INFORMATION
  Report Type: Other
  Country: SE (occurrence: SE)
  Receive Date: 20150804
  Receipt Date: 20150804
  Transmission Date: 20151125
  Serious: Yes (Other)
  Sender: FDA-Public Use
  Company Number: SE-MYLANLABS-2015M1025129

PATIENT

DRUGS (6)
  1. SERTRALINE [Concomitant]
     Active Substance: SERTRALINE HYDROCHLORIDE
     Dosage: UNK
  2. FELODIPIN STADA [Concomitant]
     Dosage: UNK
  3. SIMIDON [Concomitant]
     Active Substance: SIMVASTATIN
     Dosage: UNK
  4. ENALAPRIL COMP STADA [Concomitant]
     Dosage: UNK
  5. METOPROLOL SUCCINATE MYLAN [Suspect]
     Active Substance: METOPROLOL SUCCINATE
     Dosage: 100 MG, QD
     Route: 048
     Dates: start: 20150525, end: 20150615
  6. TROMBYL [Concomitant]
     Active Substance: ASPIRIN
     Dosage: UNK

REACTIONS (2)
  - Diarrhoea [Recovered/Resolved]
  - Product substitution issue [Recovered/Resolved]

NARRATIVE: CASE EVENT DATE: 201505
